FAERS Safety Report 8912487 (Version 2)
Quarter: 2013Q1

REPORT INFORMATION
  Report Type: Report from Study
  Country: PL (occurrence: PL)
  Receive Date: 20121116
  Receipt Date: 20130306
  Transmission Date: 20140127
  Serious: Yes (Other)
  Sender: FDA-Public Use
  Company Number: PL-ROCHE-1152623

PATIENT
  Sex: 0

DRUGS (2)
  1. RITUXIMAB [Suspect]
     Indication: POST TRANSPLANT LYMPHOPROLIFERATIVE DISORDER
     Route: 042
  2. RITUXIMAB [Suspect]
     Dosage: 10 - 30MG DISSOLVED IN 3-10ML SALINE
     Route: 037

REACTIONS (1)
  - Convulsion [Recovered/Resolved]
